FAERS Safety Report 9121586 (Version 5)
Quarter: 2013Q3

REPORT INFORMATION
  Report Type: Spontaneous
  Country: US (occurrence: US)
  Receive Date: 20130227
  Receipt Date: 20130729
  Transmission Date: 20140515
  Serious: No
  Sender: FDA-Public Use
  Company Number: US-009507513-1302USA005705

PATIENT
  Sex: Female

DRUGS (10)
  1. PEGINTRON [Suspect]
     Indication: HEPATITIS C
     Dosage: REDIPEN
     Route: 058
     Dates: start: 20130120, end: 20130501
  2. REBETOL [Suspect]
     Indication: HEPATITIS C
     Dosage: UNK
     Route: 048
     Dates: start: 20130120, end: 20130501
  3. TELAPREVIR [Suspect]
     Indication: HEPATITIS C
     Dosage: UNK
     Dates: start: 20130120, end: 20130501
  4. SYNTHROID [Concomitant]
     Indication: HYPOTHYROIDISM
     Dosage: UNK UNK, QD
  5. TRAMADOL HYDROCHLORIDE [Concomitant]
  6. LYRICA [Concomitant]
  7. CYMBALTA [Concomitant]
  8. KLONOPIN [Concomitant]
  9. ADDERALL TABLETS [Concomitant]
  10. NORCO [Concomitant]

REACTIONS (13)
  - Oropharyngeal pain [Unknown]
  - Influenza like illness [Unknown]
  - Fatigue [Unknown]
  - Drug ineffective [Unknown]
  - Therapeutic response decreased [Unknown]
  - Memory impairment [Unknown]
  - Drug administration error [Unknown]
  - Depression [Unknown]
  - Fatigue [Unknown]
  - Hepatitis C RNA increased [Unknown]
  - Anal pruritus [Unknown]
  - Anorectal discomfort [Unknown]
  - Haemorrhoids [Unknown]
